FAERS Safety Report 10214732 (Version 1)
Quarter: 2014Q2

REPORT INFORMATION
  Report Type: Spontaneous
  Country: US (occurrence: US)
  Receive Date: 20140603
  Receipt Date: 20140603
  Transmission Date: 20141212
  Serious: No
  Sender: FDA-Public Use
  Company Number: US-TEVA-485595USA

PATIENT
  Age: 57 Year
  Sex: Female

DRUGS (2)
  1. COPAXONE [Suspect]
     Dates: start: 20140430
  2. COPAXONE [Suspect]
     Dates: start: 2012

REACTIONS (1)
  - Ocular hyperaemia [Unknown]
